FAERS Safety Report 11447453 (Version 1)
Quarter: 2015Q3

REPORT INFORMATION
  Report Type: Spontaneous
  Country: US (occurrence: US)
  Receive Date: 20150902
  Receipt Date: 20150902
  Transmission Date: 20151125
  Serious: No
  Sender: FDA-Public Use
  Company Number: US-JNJFOC-20150720945

PATIENT
  Sex: Male

DRUGS (6)
  1. RISPERDAL CONSTA [Suspect]
     Active Substance: RISPERIDONE
     Indication: SCHIZOPHRENIA
     Route: 030
  2. BENADRYL [Concomitant]
     Active Substance: DIPHENHYDRAMINE HYDROCHLORIDE
     Indication: SLEEP DISORDER THERAPY
     Dosage: 25MG AT BED TIME AS NECESSARY
     Route: 065
  3. UNSPECIFIED JNJ COMPOUND [Suspect]
     Active Substance: UNSPECIFIED INGREDIENT
     Indication: SLEEP DISORDER THERAPY
     Dosage: 2 MG AT BED TIME AS NEEDED
     Route: 065
  4. COGETIN [Concomitant]
     Indication: PRODUCT USED FOR UNKNOWN INDICATION
     Route: 065
  5. RISPERDAL CONSTA [Suspect]
     Active Substance: RISPERIDONE
     Indication: SCHIZOPHRENIA
     Route: 030
  6. RISPERDAL CONSTA [Suspect]
     Active Substance: RISPERIDONE
     Indication: SCHIZOPHRENIA
     Route: 030

REACTIONS (6)
  - Paranoia [Unknown]
  - Hallucination, auditory [Unknown]
  - Needle issue [Unknown]
  - Underdose [Unknown]
  - Device malfunction [Unknown]
  - Wrong technique in product usage process [Unknown]
